FAERS Safety Report 20707860 (Version 5)
Quarter: 2022Q2

REPORT INFORMATION
  Report Type: Report from Study
  Country: DE (occurrence: DE)
  Receive Date: 20220414
  Receipt Date: 20220624
  Transmission Date: 20220721
  Serious: Yes (Hospitalization, Disabling)
  Sender: FDA-Public Use
  Company Number: DE-BRISTOL-MYERS SQUIBB COMPANY-2022-018304

PATIENT
  Age: 65 Year
  Sex: Female

DRUGS (11)
  1. NIVOLUMAB [Suspect]
     Active Substance: NIVOLUMAB
     Indication: Non-small cell lung cancer
     Route: 042
     Dates: start: 20211118, end: 20220106
  2. NIVOLUMAB [Suspect]
     Active Substance: NIVOLUMAB
  3. IPILIMUMAB [Suspect]
     Active Substance: IPILIMUMAB
     Indication: Non-small cell lung cancer
     Route: 042
     Dates: start: 20211118, end: 20220106
  4. IPILIMUMAB [Suspect]
     Active Substance: IPILIMUMAB
  5. CARBOPLATIN [Suspect]
     Active Substance: CARBOPLATIN
     Indication: Non-small cell lung cancer
     Route: 042
     Dates: start: 20211118, end: 20211214
  6. CARBOPLATIN [Suspect]
     Active Substance: CARBOPLATIN
  7. PACLITAXEL [Suspect]
     Active Substance: PACLITAXEL
     Indication: Non-small cell lung cancer
     Route: 042
     Dates: start: 20211118, end: 20211214
  8. TETRACAINE [Concomitant]
     Active Substance: TETRACAINE
     Indication: Product used for unknown indication
     Route: 065
     Dates: start: 20211214
  9. ANTRA [OMEPRAZOLE SODIUM] [Concomitant]
     Indication: Prophylaxis
     Route: 065
     Dates: start: 20220401
  10. DEXAMETHASONE [Concomitant]
     Active Substance: DEXAMETHASONE
     Indication: Product used for unknown indication
     Route: 065
     Dates: start: 20220114, end: 20220208
  11. PANTOPRAZOLE [Concomitant]
     Active Substance: PANTOPRAZOLE
     Indication: Prophylaxis
     Route: 065
     Dates: start: 20220127, end: 20220331

REACTIONS (2)
  - Dysphagia [Unknown]
  - Off label use [Unknown]

NARRATIVE: CASE EVENT DATE: 20220401
